FAERS Safety Report 17029956 (Version 1)
Quarter: 2019Q4

REPORT INFORMATION
  Report Type: Spontaneous
  Country: US (occurrence: US)
  Receive Date: 20191114
  Receipt Date: 20191114
  Transmission Date: 20200122
  Serious: No
  Sender: FDA-Public Use
  Company Number: NVSC2019US034484

PATIENT
  Sex: Female

DRUGS (1)
  1. COSENTYX [Suspect]
     Active Substance: SECUKINUMAB
     Indication: PSORIASIS
     Dosage: 30 MG, QMO, FOR ABOUT 5 MONTHS
     Route: 058
     Dates: start: 20190530

REACTIONS (1)
  - Mouth ulceration [Recovered/Resolved]
